FAERS Safety Report 9197262 (Version 2)
Quarter: 2013Q2

REPORT INFORMATION
  Report Type: Spontaneous
  Country: DE (occurrence: DE)
  Receive Date: 20130328
  Receipt Date: 20130425
  Transmission Date: 20140414
  Serious: Yes (Other)
  Sender: FDA-Public Use
  Company Number: DE-INCYTE CORPORATION-2013IN000538

PATIENT
  Age: 31 Year
  Sex: Male
  Weight: 89 kg

DRUGS (2)
  1. JAKAVI [Suspect]
     Dosage: 20 MG, BID
     Route: 048
     Dates: start: 20120926, end: 20121221
  2. JAKAVI [Suspect]
     Dosage: 10 MG, QD
     Route: 048
     Dates: start: 20130201, end: 20130320

REACTIONS (2)
  - Haemolytic anaemia [Recovering/Resolving]
  - Blood potassium increased [Recovered/Resolved]
